FAERS Safety Report 16477437 (Version 1)
Quarter: 2019Q2

REPORT INFORMATION
  Report Type: Spontaneous
  Country: US (occurrence: US)
  Receive Date: 20190626
  Receipt Date: 20190626
  Transmission Date: 20190711
  Serious: Yes (Other)
  Sender: FDA-Public Use
  Company Number: US-UNITED THERAPEUTICS-UNT-2019-010869

PATIENT
  Sex: Female
  Weight: 65.31 kg

DRUGS (2)
  1. REMODULIN [Suspect]
     Active Substance: TREPROSTINIL
     Indication: PULMONARY ARTERIAL HYPERTENSION
     Dosage: 0.0429 ?G/KG, CONTINUING
     Route: 058
     Dates: start: 20190307
  2. PERCOCET [Suspect]
     Active Substance: ACETAMINOPHEN\OXYCODONE HYDROCHLORIDE
     Indication: PROCEDURAL PAIN
     Dosage: UNK
     Route: 065

REACTIONS (8)
  - Dizziness [Unknown]
  - Hyperhidrosis [Unknown]
  - Hypoaesthesia oral [Unknown]
  - Palpitations [Recovered/Resolved]
  - Hypotension [Unknown]
  - Tooth socket haemorrhage [Unknown]
  - Lip swelling [Unknown]
  - Procedural pain [Unknown]
